FAERS Safety Report 22040224 (Version 1)
Quarter: 2023Q1

REPORT INFORMATION
  Report Type: Spontaneous
  Country: US (occurrence: US)
  Receive Date: 20230227
  Receipt Date: 20230227
  Transmission Date: 20230417
  Serious: No
  Sender: FDA-Public Use
  Company Number: US-PFIZER INC-PV202300034184

PATIENT
  Age: 51 Year
  Sex: Female

DRUGS (1)
  1. IBRANCE [Suspect]
     Active Substance: PALBOCICLIB
     Dosage: 125 MG, CYCLIC FOR 21 DAYS ON, 7 DAYS OFF
     Route: 048
     Dates: start: 20220914, end: 20230220

REACTIONS (3)
  - Nausea [Unknown]
  - Fatigue [Unknown]
  - Stomatitis [Unknown]
